FAERS Safety Report 4787983-5 (Version None)
Quarter: 2005Q3

REPORT INFORMATION
  Report Type: 
  Country: None (occurrence: None)
  Receive Date: 20050920
  Receipt Date: 20050318
  Transmission Date: 20060218
  Serious: Yes (Disabling)
  Sender: FDA-Public Use
  Company Number: 05H-163-0295163-00

PATIENT
  Age: 83 Year
  Sex: Female
  Weight: 81.8 kg

DRUGS (2)
  1. GENTAMICIN SULFATE [Suspect]
     Indication: INFECTION
     Dosage: INTRAVENOUS
     Route: 042
     Dates: start: 20040109
  2. ENALAPRIL MALEATE [Concomitant]

REACTIONS (2)
  - DIZZINESS [None]
  - VERTIGO [None]
